FAERS Safety Report 4739029-2 (Version None)
Quarter: 2005Q3

REPORT INFORMATION
  Report Type: 
  Country: None (occurrence: None)
  Receive Date: 20050801
  Receipt Date: 20050225
  Transmission Date: 20060218
  Serious: Yes (Hospitalization, Other)
  Sender: FDA-Public Use
  Company Number: 211347

PATIENT
  Age: 57 Year
  Sex: Male
  Weight: 76.6 kg

DRUGS (3)
  1. RITUXAN [Suspect]
     Indication: CHRONIC LYMPHOCYTIC LEUKAEMIA
     Dosage: MG, INTRAVENOUS
     Route: 042
     Dates: start: 20021001, end: 20041215
  2. ACETAMINOPHEN [Concomitant]
  3. BENADRYL [Concomitant]

REACTIONS (1)
  - INTERSTITIAL LUNG DISEASE [None]
